FAERS Safety Report 7083306-X (Version None)
Quarter: 2010Q4

REPORT INFORMATION
  Report Type: 
  Country: None (occurrence: None)
  Receive Date: 20101104
  Receipt Date: 20101025
  Transmission Date: 20110411
  Serious: Yes (Hospitalization)
  Sender: FDA-Public Use
  Company Number: PHHY2010US72215

PATIENT
  Sex: Female

DRUGS (1)
  1. FEMARA [Suspect]
     Indication: BREAST CANCER FEMALE
     Dosage: 2.5 MG DAILY
     Route: 048
     Dates: start: 20100907

REACTIONS (4)
  - BALANCE DISORDER [None]
  - FALL [None]
  - HIP ARTHROPLASTY [None]
  - HIP FRACTURE [None]
